FAERS Safety Report 4516987-2 (Version None)
Quarter: 2004Q4

REPORT INFORMATION
  Report Type: 
  Country: None (occurrence: None)
  Receive Date: 20041130
  Receipt Date: 20041115
  Transmission Date: 20050328
  Serious: Yes (Hospitalization, Other)
  Sender: FDA-Public Use
  Company Number: A-CH2004-08131

PATIENT
  Age: 76 Year
  Sex: Female

DRUGS (5)
  1. TRACLEER [Suspect]
     Indication: PULMONARY HYPERTENSION
     Dosage: 62.5 MG, BID, ORAL; 125 MG, BID, ORAL
     Route: 048
     Dates: start: 20031020, end: 20031210
  2. TRACLEER [Suspect]
     Indication: PULMONARY HYPERTENSION
     Dosage: 62.5 MG, BID, ORAL; 125 MG, BID, ORAL
     Route: 048
     Dates: start: 20031211, end: 20040601
  3. PREVISCAN (FLUINDIONE) [Concomitant]
  4. LASIX [Concomitant]
  5. ATARAX [Concomitant]

REACTIONS (8)
  - ASCITES [None]
  - CARDIAC FAILURE [None]
  - DYSPNOEA [None]
  - GENERALISED OEDEMA [None]
  - PERICARDIAL EFFUSION [None]
  - RIGHT VENTRICULAR FAILURE [None]
  - SODIUM RETENTION [None]
  - WEIGHT INCREASED [None]
